FAERS Safety Report 9743122 (Version 1)
Quarter: 2013Q4

REPORT INFORMATION
  Report Type: Spontaneous
  Country: US (occurrence: US)
  Receive Date: 20131210
  Receipt Date: 20131210
  Transmission Date: 20140711
  Serious: No
  Sender: FDA-Public Use
  Company Number: US-GILEAD-2009-0024870

PATIENT
  Sex: Female

DRUGS (15)
  1. LETAIRIS [Suspect]
     Indication: PULMONARY ARTERIAL HYPERTENSION
     Route: 048
     Dates: start: 20090929
  2. REVATIO [Concomitant]
  3. WARFARIN [Concomitant]
  4. LOVENOX [Concomitant]
  5. LASIX [Concomitant]
  6. LISINOPRIL [Concomitant]
  7. METOPROLOL SUCCINATE [Concomitant]
  8. CARTIA XT [Concomitant]
  9. SPIRIVA [Concomitant]
  10. OXYCODONE/APAP [Concomitant]
  11. CEPHALEXIN [Concomitant]
  12. PROPOXACET-N [Concomitant]
  13. MEDROXYPROGESTERONE [Concomitant]
  14. CYANOCOBALAMIN [Concomitant]
  15. PREDNISONE [Concomitant]

REACTIONS (7)
  - Heart rate increased [Recovered/Resolved]
  - Fatigue [Recovered/Resolved]
  - Pain [Recovered/Resolved]
  - Headache [Recovered/Resolved]
  - Swelling [Recovered/Resolved]
  - Erythema [Recovered/Resolved]
  - Rash [Recovered/Resolved]
